FAERS Safety Report 23054865 (Version 4)
Quarter: 2023Q4

REPORT INFORMATION
  Report Type: Report from Study
  Country: IT (occurrence: IT)
  Receive Date: 20231011
  Receipt Date: 20231122
  Transmission Date: 20240109
  Serious: Yes (Hospitalization)
  Sender: FDA-Public Use
  Company Number: IT-BIOVITRUM-2023-IT-015686

PATIENT
  Age: 13 Year
  Sex: Female
  Weight: 71.8 kg

DRUGS (14)
  1. EMAPALUMAB [Suspect]
     Active Substance: EMAPALUMAB
     Indication: Haemophagocytic lymphohistiocytosis
     Dosage: 6MG, ONCE
     Route: 041
     Dates: start: 20230620, end: 20230620
  2. EMAPALUMAB [Suspect]
     Active Substance: EMAPALUMAB
     Indication: Still^s disease
     Dosage: 10MG, ONCE
     Route: 041
     Dates: start: 20230622, end: 20230622
  3. EMAPALUMAB [Suspect]
     Active Substance: EMAPALUMAB
     Dosage: 3MG, EVERY 2 DAYS
     Route: 041
     Dates: start: 20230624, end: 20230630
  4. EMAPALUMAB [Suspect]
     Active Substance: EMAPALUMAB
     Dosage: 3MG, TWO TIMES WEEKLY
     Route: 041
     Dates: start: 20230703, end: 20230814
  5. EMAPALUMAB [Suspect]
     Active Substance: EMAPALUMAB
     Dosage: 6MG, ONCE IN A WEEK
     Route: 041
     Dates: start: 20230817, end: 20230928
  6. EMAPALUMAB [Suspect]
     Active Substance: EMAPALUMAB
     Dosage: 6MG, ONCE IN A WEEK
     Route: 042
     Dates: start: 20230824, end: 20230928
  7. EMAPALUMAB [Suspect]
     Active Substance: EMAPALUMAB
     Dates: start: 20231009
  8. ANAKINRA [Concomitant]
     Active Substance: ANAKINRA
     Indication: Haemophagocytic lymphohistiocytosis
     Dates: start: 20230623
  9. PREDNISONE [Concomitant]
     Active Substance: PREDNISONE
     Indication: Haemophagocytic lymphohistiocytosis
     Dates: start: 20230922
  10. RAMIPRIL [Concomitant]
     Active Substance: RAMIPRIL
     Indication: Hypertension
     Dates: start: 20230808
  11. URSODESOSSICOCIC ACID [Concomitant]
     Indication: Prophylaxis
     Dosage: BID
     Dates: start: 20230624
  12. OMEPRAZOLE [Concomitant]
     Active Substance: OMEPRAZOLE
     Indication: Haemophagocytic lymphohistiocytosis
     Dates: start: 20230928
  13. ROCALTROL [Concomitant]
     Active Substance: CALCITRIOL
     Indication: Haemophagocytic lymphohistiocytosis
     Dates: start: 20230710
  14. MELATONIN [Concomitant]
     Active Substance: MELATONIN
     Indication: Haemophagocytic lymphohistiocytosis
     Dosage: AS NEEDED
     Dates: start: 20230827

REACTIONS (1)
  - Herpes zoster [Recovered/Resolved]

NARRATIVE: CASE EVENT DATE: 20231004
